FAERS Safety Report 22297158 (Version 1)
Quarter: 2023Q2

REPORT INFORMATION
  Report Type: Spontaneous
  Country: US (occurrence: None)
  Receive Date: 20230509
  Receipt Date: 20230509
  Transmission Date: 20230722
  Serious: Yes (Hospitalization, Other)
  Sender: FDA-Public Use
  Company Number: US-ROCHE-3341807

PATIENT
  Age: 68 Year
  Sex: Female
  Weight: 54.480 kg

DRUGS (15)
  1. XOLAIR [Suspect]
     Active Substance: OMALIZUMAB
     Indication: Asthma
     Dosage: 2 SHOTS, ONE INJECTION IN EACH ARM OR STOMACH
     Route: 065
     Dates: start: 20230425
  2. XOLAIR [Suspect]
     Active Substance: OMALIZUMAB
     Indication: Hypersensitivity
  3. XOLAIR [Suspect]
     Active Substance: OMALIZUMAB
     Indication: Idiopathic urticaria
  4. PHENOBARBITAL [Concomitant]
     Active Substance: PHENOBARBITAL
     Indication: Epilepsy
  5. ELIQUIS [Concomitant]
     Active Substance: APIXABAN
  6. FAMOTIDINE [Concomitant]
     Active Substance: FAMOTIDINE
  7. LEVALBUTEROL [Concomitant]
     Active Substance: LEVALBUTEROL
  8. REPATHA [Concomitant]
     Active Substance: EVOLOCUMAB
  9. PANTOPRAZOLE [Concomitant]
     Active Substance: PANTOPRAZOLE
  10. FOLTX [Concomitant]
     Active Substance: CYANOCOBALAMIN CO-57\FOLIC ACID\PYRIDOXINE HYDROCHLORIDE
  11. SINGULARIS SUPERIOR ASHWAGANDHA FORTE [Concomitant]
  12. ERGOCALCIFEROL [Concomitant]
     Active Substance: ERGOCALCIFEROL
  13. CALCIUM [Concomitant]
     Active Substance: CALCIUM
  14. HYDROCODONE [Concomitant]
     Active Substance: HYDROCODONE
  15. NEILMED SINUS RINSE [Concomitant]
     Active Substance: SODIUM BICARBONATE\SODIUM CHLORIDE
     Indication: Sinusitis
     Route: 045

REACTIONS (16)
  - Dyspnoea [Recovered/Resolved]
  - Pneumonia [Unknown]
  - Hypoaesthesia [Unknown]
  - Throat tightness [Unknown]
  - Lip swelling [Recovered/Resolved]
  - Dyspnoea [Recovered/Resolved]
  - Anal fungal infection [Not Recovered/Not Resolved]
  - Epilepsy [Unknown]
  - Faeces soft [Not Recovered/Not Resolved]
  - Decreased appetite [Not Recovered/Not Resolved]
  - Urticaria [Not Recovered/Not Resolved]
  - Drug ineffective [Unknown]
  - Erythema [Unknown]
  - Fungal infection [Unknown]
  - Illness [Unknown]
  - Off label use [Unknown]

NARRATIVE: CASE EVENT DATE: 20230425
